FAERS Safety Report 13696035 (Version 1)
Quarter: 2017Q2

REPORT INFORMATION
  Report Type: Spontaneous
  Country: US (occurrence: US)
  Receive Date: 20170628
  Receipt Date: 20170628
  Transmission Date: 20170830
  Serious: No
  Sender: FDA-Public Use
  Company Number: US-LUPIN PHARMACEUTICALS INC.-E2B_00005700

PATIENT
  Sex: Female

DRUGS (1)
  1. METHYLERGONOVINE [Suspect]
     Active Substance: METHYLERGONOVINE
     Indication: MIGRAINE
     Dosage: .2 MG,UNK,
     Route: 048

REACTIONS (2)
  - Off label use [Unknown]
  - No adverse event [Unknown]
